FAERS Safety Report 8612001-8 (Version None)
Quarter: 2012Q3

REPORT INFORMATION
  Report Type: 
  Country: None (occurrence: None)
  Receive Date: 20120809
  Receipt Date: 20120730
  Transmission Date: 20120928
  Serious: Yes (Other)
  Sender: FDA-Public Use
  Company Number: JP-2012-15677

PATIENT
  Age: 78 Year
  Sex: Female
  Weight: 39 kg

DRUGS (6)
  1. NITRODERM [Concomitant]
  2. MIYA BM (CLOSTRIDIUM BUTYRICUM) [Concomitant]
  3. LASIX [Concomitant]
  4. SAMSCA [Suspect]
     Indication: CARDIAC FAILURE
     Dosage: 15 MG MILLIGRAM(S), QD
     Dates: start: 20120613, end: 20120618
  5. SAMSCA [Suspect]
     Indication: PLEURAL EFFUSION
     Dosage: 15 MG MILLIGRAM(S), QD
     Dates: start: 20120613, end: 20120618
  6. VANCOMYCIN HYDROCHLORIDE [Concomitant]

REACTIONS (6)
  - HYPERNATRAEMIA [None]
  - BLOOD UREA INCREASED [None]
  - CARDIAC FAILURE CHRONIC [None]
  - HEPATIC FUNCTION ABNORMAL [None]
  - CONDITION AGGRAVATED [None]
  - PLATELET COUNT DECREASED [None]
